FAERS Safety Report 6135281-X (Version None)
Quarter: 2009Q1

REPORT INFORMATION
  Report Type: 
  Country: None (occurrence: None)
  Receive Date: 20090326
  Receipt Date: 20081015
  Transmission Date: 20090719
  Serious: Yes (Other)
  Sender: FDA-Public Use
  Company Number: US-SEPTODONT-200800202

PATIENT
  Age: 17 Year
  Sex: Female

DRUGS (1)
  1. LIGNOSPAN STANDARD [Suspect]
     Indication: LOCAL ANAESTHESIA
     Dosage: DENTAL
     Route: 004
     Dates: start: 20080929, end: 20080929

REACTIONS (5)
  - FEELING JITTERY [None]
  - HEART RATE DECREASED [None]
  - HYPERHIDROSIS [None]
  - PALLOR [None]
  - SINUS BRADYCARDIA [None]
